FAERS Safety Report 5287880-5 (Version None)
Quarter: 2007Q2

REPORT INFORMATION
  Report Type: 
  Country: None (occurrence: None)
  Receive Date: 20070405
  Receipt Date: 20070328
  Transmission Date: 20071010
  Serious: Yes (Hospitalization)
  Sender: FDA-Public Use
  Company Number: US-JNJFOC-20061004532

PATIENT
  Sex: Female

DRUGS (2)
  1. ORTHO EVRA [Suspect]
     Indication: CONTRACEPTION
     Route: 062
  2. WELLBUTRIN [Concomitant]

REACTIONS (7)
  - CEREBRAL ARTERY EMBOLISM [None]
  - CONVULSION [None]
  - INAPPROPRIATE ANTIDIURETIC HORMONE SECRETION [None]
  - ISCHAEMIC CEREBRAL INFARCTION [None]
  - MITRAL VALVE INCOMPETENCE [None]
  - SINUSITIS [None]
  - TRICUSPID VALVE INCOMPETENCE [None]
